FAERS Safety Report 21812139 (Version 4)
Quarter: 2023Q1

REPORT INFORMATION
  Report Type: Spontaneous
  Country: US (occurrence: US)
  Receive Date: 20230103
  Receipt Date: 20230215
  Transmission Date: 20230417
  Serious: Yes (Other)
  Sender: FDA-Public Use
  Company Number: US-PFIZER INC-PV202200134044

PATIENT
  Age: 30 Year
  Sex: Female

DRUGS (1)
  1. INLYTA [Suspect]
     Active Substance: AXITINIB
     Dosage: 5 MG
     Dates: end: 202301

REACTIONS (7)
  - Renal disorder [Unknown]
  - Neoplasm progression [Unknown]
  - Toothache [Unknown]
  - Back pain [Unknown]
  - Diarrhoea [Unknown]
  - Pain [Unknown]
  - Rash [Unknown]
